FAERS Safety Report 8549377-6 (Version None)
Quarter: 2012Q3

REPORT INFORMATION
  Report Type: 
  Country: None (occurrence: None)
  Receive Date: 20120730
  Receipt Date: 20120720
  Transmission Date: 20120928
  Serious: Yes (Other)
  Sender: FDA-Public Use
  Company Number: JP-VERTEX PHARMACEUTICALS INC.-AE-2012-006241

PATIENT
  Age: 63 Year
  Sex: Male

DRUGS (13)
  1. OMEPRAZOLE [Concomitant]
     Route: 048
  2. RIBAVIRIN [Concomitant]
     Route: 048
     Dates: start: 20120322, end: 20120426
  3. RIBAVIRIN [Concomitant]
     Route: 048
     Dates: start: 20120511, end: 20120614
  4. RIBAVIRIN [Concomitant]
     Route: 048
     Dates: start: 20120615, end: 20120718
  5. RIBAVIRIN [Concomitant]
     Indication: HEPATITIS C
     Route: 048
     Dates: start: 20120202, end: 20120308
  6. RIBAVIRIN [Concomitant]
     Route: 048
     Dates: start: 20120309, end: 20120321
  7. RIBAVIRIN [Concomitant]
     Route: 048
     Dates: start: 20120427, end: 20120510
  8. PEGINTERFERON ALFA-2B [Concomitant]
     Route: 058
     Dates: start: 20120329, end: 20120404
  9. OLMESARTAN MEDOXOMIL [Concomitant]
     Route: 048
  10. SELBEX [Concomitant]
     Route: 048
  11. TELAVIC (TELAPREVIR) [Suspect]
     Indication: HEPATITIS C
     Route: 048
     Dates: start: 20120202, end: 20120425
  12. PEGINTERFERON ALFA-2B [Concomitant]
     Indication: HEPATITIS C
     Route: 058
     Dates: start: 20120202
  13. PEGINTERFERON ALFA-2B [Concomitant]
     Route: 058
     Dates: start: 20120405, end: 20120712

REACTIONS (3)
  - HAEMOGLOBIN DECREASED [None]
  - WHITE BLOOD CELL COUNT DECREASED [None]
  - RASH [None]
